FAERS Safety Report 14024429 (Version 1)
Quarter: 2017Q3

REPORT INFORMATION
  Report Type: Spontaneous
  Country: US (occurrence: US)
  Receive Date: 20170928
  Receipt Date: 20170928
  Transmission Date: 20171128
  Serious: No
  Sender: FDA-Public Use
  Company Number: US-SA-2017SA005959

PATIENT
  Age: 61 Year
  Sex: Male

DRUGS (10)
  1. AUBAGIO [Suspect]
     Active Substance: TERIFLUNOMIDE
     Indication: MULTIPLE SCLEROSIS
     Route: 048
     Dates: start: 201607
  2. FISH OIL [Concomitant]
     Active Substance: FISH OIL
  3. AUBAGIO [Suspect]
     Active Substance: TERIFLUNOMIDE
     Indication: MULTIPLE SCLEROSIS
     Route: 048
     Dates: start: 201607
  4. ATORVASTATIN [Concomitant]
     Active Substance: ATORVASTATIN
  5. AMLODIPINE [Concomitant]
     Active Substance: AMLODIPINE BESYLATE
  6. CARVEDILOL. [Concomitant]
     Active Substance: CARVEDILOL
  7. CELEBREX [Concomitant]
     Active Substance: CELECOXIB
  8. LORATADINE. [Concomitant]
     Active Substance: LORATADINE
  9. FOLIC ACID W/VITAMIN B12 [Concomitant]
  10. VITAMIN D3 [Concomitant]
     Active Substance: CHOLECALCIFEROL

REACTIONS (6)
  - Rash pruritic [Unknown]
  - Acne [Unknown]
  - Paraesthesia [Not Recovered/Not Resolved]
  - Condition aggravated [Not Recovered/Not Resolved]
  - Rash erythematous [Unknown]
  - Unevaluable event [Unknown]

NARRATIVE: CASE EVENT DATE: 2016
